FAERS Safety Report 5379514-6 (Version None)
Quarter: 2007Q3

REPORT INFORMATION
  Report Type: 
  Country: None (occurrence: None)
  Receive Date: 20070703
  Receipt Date: 20070627
  Transmission Date: 20080115
  Serious: Yes (Death)
  Sender: FDA-Public Use
  Company Number: 163-21880-07061538

PATIENT
  Age: 60 Year
  Sex: Male

DRUGS (12)
  1. REVLIMID [Suspect]
     Indication: MULTIPLE MYELOMA
     Dosage: 5 MG, X21 DAYS, ORAL
     Route: 048
     Dates: start: 20070319, end: 20070517
  2. BLOOD TRANSFUSIONS (BLOOD TRANSFUSION, AUXILIARY PRODUCTS) [Concomitant]
  3. TRILISATE (TRILISATE) [Concomitant]
  4. ATIVAN [Concomitant]
  5. MORPHINE [Concomitant]
  6. CEPHALEXIN [Concomitant]
  7. CLONAZEPAM [Concomitant]
  8. NEUPOGEN [Concomitant]
  9. FOLIC ACID [Concomitant]
  10. ZANTAC [Concomitant]
  11. CIPRO [Concomitant]
  12. CLINDAMYCIN (CLINDAMYCIN) [Concomitant]

REACTIONS (1)
  - DEATH [None]
